FAERS Safety Report 4997031-X (Version None)
Quarter: 2006Q2

REPORT INFORMATION
  Report Type: 
  Country: None (occurrence: None)
  Receive Date: 20060509
  Receipt Date: 20060427
  Transmission Date: 20061013
  Serious: Yes (Death, Hospitalization)
  Sender: FDA-Public Use
  Company Number: US-SANOFI-SYNTHELABO-A03200602698

PATIENT
  Age: 13 Month
  Sex: Female

DRUGS (3)
  1. PLAVIX [Suspect]
     Indication: THROMBOSIS
     Dosage: UNK
     Route: 048
  2. LEPIRUDIN [Suspect]
     Indication: THROMBOSIS
     Dosage: UNK
     Route: 065
  3. ASPIRIN [Suspect]
     Indication: THROMBOSIS
     Dosage: UNK
     Route: 048

REACTIONS (7)
  - GASTROINTESTINAL HAEMORRHAGE [None]
  - HEPARIN-INDUCED THROMBOCYTOPENIA [None]
  - IMPLANT SITE THROMBOSIS [None]
  - MULTI-ORGAN FAILURE [None]
  - PULMONARY HAEMORRHAGE [None]
  - PYREXIA [None]
  - RENAL IMPAIRMENT [None]
